FAERS Safety Report 15181182 (Version 1)
Quarter: 2018Q3

REPORT INFORMATION
  Report Type: Spontaneous
  Country: IL (occurrence: IL)
  Receive Date: 20180723
  Receipt Date: 20180723
  Transmission Date: 20181010
  Serious: Yes (Congenital Anomaly, Other)
  Sender: FDA-Public Use
  Company Number: IL-GILEAD-2018-0350575

PATIENT
  Age: 0 Year
  Sex: Male
  Weight: 3.81 kg

DRUGS (4)
  1. GENDEVRA [Suspect]
     Active Substance: COBICISTAT\ELVITEGRAVIR\EMTRICITABINE\TENOFOVIR ALAFENAMIDE FUMARATE
     Indication: HIV INFECTION
     Dosage: UNK
     Route: 064
     Dates: start: 2017, end: 20180712
  2. AZT [Concomitant]
     Active Substance: ZIDOVUDINE
     Indication: HIV INFECTION
     Route: 064
  3. RITONAVIR. [Concomitant]
     Active Substance: RITONAVIR
     Indication: HIV INFECTION
     Route: 064
  4. FOLIC ACID. [Concomitant]
     Active Substance: FOLIC ACID

REACTIONS (2)
  - Foetal exposure during pregnancy [Recovered/Resolved]
  - Cleft lip [Not Recovered/Not Resolved]

NARRATIVE: CASE EVENT DATE: 2017
